FAERS Safety Report 16818130 (Version 1)
Quarter: 2019Q3

REPORT INFORMATION
  Report Type: Spontaneous
  Country: DE (occurrence: DE)
  Receive Date: 20190917
  Receipt Date: 20190917
  Transmission Date: 20191005
  Serious: Yes (Other)
  Sender: FDA-Public Use
  Company Number: DE-CELGENEUS-DEU-20190903234

PATIENT
  Age: 40 Year
  Sex: Female

DRUGS (7)
  1. CICLOSPORINE A [Concomitant]
     Active Substance: CYCLOSPORINE
     Indication: BEHCET^S SYNDROME
     Dosage: 150 MILLIGRAM
     Route: 065
  2. CICLOSPORINE A [Concomitant]
     Active Substance: CYCLOSPORINE
     Dosage: 125 MILLIGRAM
     Route: 065
     Dates: end: 201805
  3. PREDNISOLONE. [Concomitant]
     Active Substance: PREDNISOLONE
     Dosage: 20 MILLIGRAM
     Route: 065
  4. OTEZLA [Suspect]
     Active Substance: APREMILAST
     Indication: PSORIASIS
     Route: 048
     Dates: start: 201804
  5. GUSELKUMAB [Concomitant]
     Active Substance: GUSELKUMAB
     Indication: BEHCET^S SYNDROME
     Route: 065
     Dates: start: 201806
  6. PREDNISOLONE. [Concomitant]
     Active Substance: PREDNISOLONE
     Indication: PRODUCT USED FOR UNKNOWN INDICATION
     Dosage: 2.5 MILLIGRAM
     Route: 065
  7. PREDNISOLONE. [Concomitant]
     Active Substance: PREDNISOLONE
     Dosage: 4 MILLIGRAM
     Route: 065

REACTIONS (5)
  - Mouth ulceration [Unknown]
  - Erythema nodosum [Unknown]
  - Coxsackie viral infection [Recovered/Resolved]
  - Aphthous ulcer [Recovering/Resolving]
  - Treatment failure [Unknown]
